FAERS Safety Report 21773521 (Version 1)
Quarter: 2022Q4

REPORT INFORMATION
  Report Type: Spontaneous
  Country: NL (occurrence: NL)
  Receive Date: 20221223
  Receipt Date: 20221223
  Transmission Date: 20230113
  Serious: Yes (Disabling)
  Sender: FDA-Public Use
  Company Number: None

PATIENT
  Sex: Male
  Weight: 80 kg

DRUGS (1)
  1. TAMSULOSIN [Suspect]
     Active Substance: TAMSULOSIN
     Indication: Micturition disorder
     Dosage: 0.4 MG, QD (1X DAG 1 STUK)
     Route: 065
     Dates: start: 20220824, end: 20221001

REACTIONS (1)
  - Retinal detachment [Not Recovered/Not Resolved]
